FAERS Safety Report 6221130-8 (Version None)
Quarter: 2009Q2

REPORT INFORMATION
  Report Type: 
  Country: None (occurrence: None)
  Receive Date: 20090608
  Receipt Date: 20090526
  Transmission Date: 20091009
  Serious: Yes (Hospitalization)
  Sender: FDA-Public Use
  Company Number: 2009-02082

PATIENT
  Age: 42 Year
  Sex: Male
  Weight: 85 kg

DRUGS (6)
  1. VELCADE [Suspect]
     Indication: HODGKIN'S DISEASE
  2. IFOSFAMIDE [Suspect]
     Indication: HODGKIN'S DISEASE
  3. GEMCITABINE [Suspect]
     Indication: HODGKIN'S DISEASE
  4. VINORELBINE [Suspect]
     Indication: HODGKIN'S DISEASE
  5. PREDNISONE TAB [Suspect]
     Indication: HODGKIN'S DISEASE
  6. LANSOPRAZOLE [Suspect]
     Indication: HODGKIN'S DISEASE
     Dosage: 30 MGORAL
     Route: 048

REACTIONS (2)
  - HAEMOLYSIS [None]
  - PROCEDURAL COMPLICATION [None]
